FAERS Safety Report 19812687 (Version 1)
Quarter: 2021Q3

REPORT INFORMATION
  Report Type: Spontaneous
  Country: US (occurrence: US)
  Receive Date: 20210909
  Receipt Date: 20210909
  Transmission Date: 20211014
  Serious: Yes (Hospitalization, Other)
  Sender: FDA-Public Use
  Company Number: US-ROCHE-2905890

PATIENT
  Age: 63 Year
  Sex: Female
  Weight: 98.52 kg

DRUGS (1)
  1. XOLAIR [Suspect]
     Active Substance: OMALIZUMAB
     Indication: CHRONIC SPONTANEOUS URTICARIA
     Dosage: 150 MG TIMES 2, ONCE A MONTH ;ONGOING: YES
     Route: 058

REACTIONS (4)
  - Multiple fractures [Unknown]
  - Femur fracture [Unknown]
  - Foot fracture [Unknown]
  - Pulmonary embolism [Unknown]

NARRATIVE: CASE EVENT DATE: 20210813
